FAERS Safety Report 8802984 (Version 1)
Quarter: 2012Q4

REPORT INFORMATION
  Report Type: 
  Country: US (occurrence: US)
  Receive Date: 20120924
  Receipt Date: 20120924
  Transmission Date: 20130627
  Serious: No
  Sender: FDA-Public Use
  Company Number: US-PFIZER INC-2012235013

PATIENT
  Age: 53 Year
  Sex: Male
  Weight: 70.3 kg

DRUGS (3)
  1. ADVIL [Suspect]
     Indication: JOINT STIFFNESS
     Dosage: 4 tablets of 200 mg, as needed
     Route: 048
  2. ADVIL CONGESTION RELIEF [Suspect]
     Dosage: 3 tablets, UNK
     Route: 048
     Dates: start: 20120921
  3. ZOCOR [Concomitant]
     Indication: BLOOD CHOLESTEROL ABNORMAL
     Dosage: UNK, daily

REACTIONS (3)
  - Drug ineffective [Unknown]
  - Overdose [Unknown]
  - Accidental exposure to product [Unknown]
